FAERS Safety Report 6194278-4 (Version None)
Quarter: 2009Q2

REPORT INFORMATION
  Report Type: 
  Country: None (occurrence: None)
  Receive Date: 20090519
  Receipt Date: 20090508
  Transmission Date: 20091009
  Serious: Yes (Other)
  Sender: FDA-Public Use
  Company Number: CH-WYE-G03523409

PATIENT
  Age: 23 Year
  Sex: Female

DRUGS (3)
  1. EFFEXOR [Suspect]
     Indication: BIPOLAR DISORDER
     Route: 048
  2. ZOLPIDEM [Concomitant]
     Route: 048
  3. PRAZINE [Suspect]
     Indication: BIPOLAR DISORDER

REACTIONS (1)
  - DRUG EXPOSURE DURING PREGNANCY [None]
